FAERS Safety Report 9062489 (Version 2)
Quarter: 2013Q1

REPORT INFORMATION
  Report Type: Spontaneous
  Country: JP (occurrence: JP)
  Receive Date: 20130128
  Receipt Date: 20130226
  Transmission Date: 20140127
  Serious: Yes (Life-Threatening, Other)
  Sender: FDA-Public Use
  Company Number: JP-BRISTOL-MYERS SQUIBB COMPANY-17315490

PATIENT
  Age: 47 Year
  Sex: Female

DRUGS (3)
  1. ABILIFY TABS [Suspect]
     Route: 048
  2. LEXOTAN [Concomitant]
  3. AKINETON [Concomitant]

REACTIONS (1)
  - Pulmonary embolism [Unknown]
